FAERS Safety Report 4707429-2 (Version None)
Quarter: 2005Q3

REPORT INFORMATION
  Report Type: 
  Country: None (occurrence: None)
  Receive Date: 20050706
  Receipt Date: 20050610
  Transmission Date: 20060218
  Serious: Yes (Other)
  Sender: FDA-Public Use
  Company Number: PHBS2005CA08500

PATIENT
  Age: 72 Year
  Sex: Female
  Weight: 77 kg

DRUGS (9)
  1. CLARITIN [Concomitant]
     Dosage: UNK, QID
  2. TEAR-GEL [Concomitant]
  3. DIOVAN HCT [Suspect]
     Indication: HYPERTENSION
     Dosage: VALSR 160 / HCT 25  MG/DAY
     Route: 048
     Dates: start: 20050516, end: 20050530
  4. CALCIUM GLUCONATE [Concomitant]
     Dosage: 1000 MG, UNK
  5. ASCORBIC ACID [Concomitant]
  6. FISH OIL [Concomitant]
  7. MULTI-VITAMINS [Concomitant]
  8. VITAMIN B COMPLEX CAP [Concomitant]
  9. HYDROCHLOROTHIAZIDE [Concomitant]

REACTIONS (7)
  - DYSGEUSIA [None]
  - GLOSSODYNIA [None]
  - HEADACHE [None]
  - OEDEMA PERIPHERAL [None]
  - PAIN [None]
  - PARAESTHESIA ORAL [None]
  - TONGUE DISORDER [None]
